FAERS Safety Report 11249906 (Version 1)
Quarter: 2015Q3

REPORT INFORMATION
  Report Type: Spontaneous
  Country: US (occurrence: US)
  Receive Date: 20150708
  Receipt Date: 20150708
  Transmission Date: 20151125
  Serious: Yes (Death)
  Sender: FDA-Public Use
  Company Number: US-ELI_LILLY_AND_COMPANY-US201008005398

PATIENT
  Sex: Male
  Weight: 44.99 kg

DRUGS (9)
  1. DECADRON [Concomitant]
     Active Substance: DEXAMETHASONE
     Dosage: 10 MG, UNK
     Route: 042
     Dates: start: 20100511
  2. NORMAL SALINE [Concomitant]
     Active Substance: SODIUM CHLORIDE
     Dosage: 500 ML, UNK
     Route: 042
     Dates: start: 20100511
  3. ACTIVASE [Concomitant]
     Active Substance: ALTEPLASE
     Dosage: 2 ML, UNK
     Dates: start: 20100521
  4. FERRLECIT [Concomitant]
     Active Substance: SODIUM FERRIC GLUCONATE COMPLEX
     Dosage: 125 MG, UNK
     Dates: start: 20100518
  5. ALOXI [Concomitant]
     Active Substance: PALONOSETRON HYDROCHLORIDE
     Dosage: 0.25 MG, UNK
     Route: 042
     Dates: start: 20100511
  6. BENADRYL [Concomitant]
     Active Substance: DIPHENHYDRAMINE HYDROCHLORIDE
     Dosage: 25 MG, UNK
     Route: 042
     Dates: start: 20100518
  7. PARAPLATIN [Concomitant]
     Active Substance: CARBOPLATIN
     Indication: BLADDER CANCER
     Dosage: 430 MG, UNK
     Route: 042
     Dates: start: 20100511
  8. LOVENOX [Concomitant]
     Active Substance: ENOXAPARIN SODIUM
     Dosage: 60 MG, DAILY (1/D)
     Route: 058
     Dates: start: 20100625, end: 20100706
  9. GEMZAR [Suspect]
     Active Substance: GEMCITABINE HYDROCHLORIDE
     Indication: BLADDER CANCER
     Dosage: 1420 MG, UNK
     Route: 042
     Dates: start: 20100511

REACTIONS (1)
  - Malignant neoplasm progression [Fatal]
